FAERS Safety Report 20171909 (Version 1)
Quarter: 2021Q4

REPORT INFORMATION
  Report Type: Spontaneous
  Country: US (occurrence: US)
  Receive Date: 20211210
  Receipt Date: 20211210
  Transmission Date: 20220303
  Serious: Yes (Hospitalization, Other)
  Sender: FDA-Public Use
  Company Number: US-PFIZER INC-202101707137

PATIENT
  Sex: Male

DRUGS (1)
  1. PHENYTOIN SODIUM [Suspect]
     Active Substance: PHENYTOIN SODIUM
     Dosage: UNK

REACTIONS (2)
  - Seizure [Unknown]
  - Anticonvulsant drug level increased [Unknown]
